FAERS Safety Report 5310827-X (Version None)
Quarter: 2007Q2

REPORT INFORMATION
  Report Type: 
  Country: None (occurrence: None)
  Receive Date: 20070428
  Receipt Date: 20070418
  Transmission Date: 20071010
  Serious: Yes (Hospitalization, Other)
  Sender: FDA-Public Use
  Company Number: BR-PFIZER INC-2006132321

PATIENT
  Sex: Male

DRUGS (1)
  1. GEODON [Suspect]
     Route: 048

REACTIONS (2)
  - ANXIETY [None]
  - SCHIZOPHRENIA [None]
